FAERS Safety Report 19157567 (Version 1)
Quarter: 2021Q2

REPORT INFORMATION
  Report Type: Spontaneous
  Country: CA (occurrence: CA)
  Receive Date: 20210420
  Receipt Date: 20210420
  Transmission Date: 20210717
  Serious: Yes (Other)
  Sender: FDA-Public Use
  Company Number: CA-ROCHE-2813315

PATIENT
  Sex: Male

DRUGS (6)
  1. D?ALPHA TOCOPHEROL [Concomitant]
     Active Substance: .ALPHA.-TOCOPHEROL, D-
  2. BEVACIZUMAB. [Suspect]
     Active Substance: BEVACIZUMAB
     Indication: NON-SMALL CELL LUNG CANCER
     Route: 042
  3. UBIDECARENONE. [Concomitant]
     Active Substance: UBIDECARENONE
  4. LAMIVUDINE. [Concomitant]
     Active Substance: LAMIVUDINE
  5. MERELETINIB MESILATE [Concomitant]
     Active Substance: OSIMERTINIB MESYLATE
  6. ZINC. [Concomitant]
     Active Substance: ZINC

REACTIONS (1)
  - Pulmonary oedema [Unknown]
